FAERS Safety Report 16145476 (Version 1)
Quarter: 2019Q2

REPORT INFORMATION
  Report Type: Spontaneous
  Country: FR (occurrence: FR)
  Receive Date: 20190402
  Receipt Date: 20190402
  Transmission Date: 20190711
  Serious: Yes (Hospitalization)
  Sender: FDA-Public Use
  Company Number: FR-ACCORD-117485

PATIENT
  Age: 14 Year
  Sex: Female
  Weight: 44 kg

DRUGS (6)
  1. CISPLATINE?ACCORD [Suspect]
     Active Substance: CISPLATIN
     Indication: BONE SARCOMA
     Dosage: 1?MG/ML,CONCENTRATE FOR SOLUTION FOR INFUSION
     Route: 042
     Dates: start: 20170131, end: 20170131
  2. DOXORUBICINE ARROW [Suspect]
     Active Substance: DOXORUBICIN
     Indication: BONE SARCOMA
     Dosage: STRENGTH: 2 MG/ML
     Route: 042
     Dates: start: 20170131, end: 20170131
  3. PHOSPHONEUROS [Concomitant]
     Active Substance: CALCIUM PHOSPHATE, DIBASIC, ANHYDROUS\MAGNESIUM GLYCEROPHOSPHATE\PHOSPHORIC ACID\SODIUM PHOSPHATE, DIBASIC
  4. LYRICA [Concomitant]
     Active Substance: PREGABALIN
  5. TRIFLUCAN [Concomitant]
     Active Substance: FLUCONAZOLE
  6. MYCOSTATINE [Concomitant]
     Active Substance: NYSTATIN

REACTIONS (2)
  - Ototoxicity [Recovered/Resolved]
  - Bone marrow failure [Recovered/Resolved]

NARRATIVE: CASE EVENT DATE: 201702
